FAERS Safety Report 17911299 (Version 1)
Quarter: 2020Q2

REPORT INFORMATION
  Report Type: Spontaneous
  Country: US (occurrence: US)
  Receive Date: 20200617
  Receipt Date: 20200617
  Transmission Date: 20200714
  Serious: Yes (Other)
  Sender: FDA-Public Use
  Company Number: None

PATIENT
  Age: 84 Year
  Sex: Female
  Weight: 59.8 kg

DRUGS (17)
  1. MACUVITE ORAL TABLETS [Concomitant]
  2. FIORICET [Concomitant]
     Active Substance: ACETAMINOPHEN\BUTALBITAL\CAFFEINE
     Dates: start: 20170113
  3. CYANOCOBALAMIN. [Concomitant]
     Active Substance: CYANOCOBALAMIN
     Dates: start: 20180920
  4. METAMUCIL [Concomitant]
     Active Substance: PLANTAGO SEED
  5. LOSARTAN 25MG [Concomitant]
     Active Substance: LOSARTAN
     Dates: start: 20200207
  6. VITAMIN D [Concomitant]
     Active Substance: VITAMIN D NOS
  7. FOLIC ACID. [Concomitant]
     Active Substance: FOLIC ACID
     Dates: start: 20190917
  8. KETOCONAZOLE SHAMPOO [Concomitant]
     Active Substance: KETOCONAZOLE
     Dates: start: 20200225
  9. ALBUTEROL 90MCG ACTUATION INHALER [Concomitant]
     Dates: start: 20190301
  10. TIOTROPIUM 18MCG CAPSULE FOR INHALER [Concomitant]
     Dates: start: 20191230
  11. ALENDRONATE [Concomitant]
     Active Substance: ALENDRONATE SODIUM
  12. POTASSIUM CHLORIDE 20MEQ [Concomitant]
     Active Substance: POTASSIUM CHLORIDE
     Dates: start: 20200601
  13. APIXABAN [Suspect]
     Active Substance: APIXABAN
     Indication: ATRIAL FIBRILLATION
     Route: 048
     Dates: start: 20200603
  14. CALCIUM + VITAMIN D [Concomitant]
     Active Substance: CALCIUM\VITAMIN D
  15. FUROSEMIDE 40MG [Concomitant]
     Active Substance: FUROSEMIDE
     Dates: start: 20200601
  16. OMEPRAZOLE 40MG [Concomitant]
     Active Substance: OMEPRAZOLE
     Dates: start: 20200228
  17. SALMETEROL DISKUS INHALER [Concomitant]
     Dates: start: 20191230

REACTIONS (1)
  - Burning sensation [None]

NARRATIVE: CASE EVENT DATE: 20200603
